FAERS Safety Report 8790163 (Version 1)
Quarter: 2012Q4

REPORT INFORMATION
  Report Type: Report from Study
  Country: JP (occurrence: JP)
  Receive Date: 20120914
  Receipt Date: 20120914
  Transmission Date: 20130627
  Serious: Yes (Other)
  Sender: FDA-Public Use
  Company Number: JP-ASTELLAS-2012JP008502

PATIENT
  Age: 64 Year
  Sex: Male

DRUGS (4)
  1. TACROLIMUS [Suspect]
     Indication: IMMUNOSUPPRESSANT DRUG THERAPY
     Dosage: 3 mg, UID/QD
     Route: 065
  2. METHYLPREDNISOLONE [Concomitant]
     Indication: STEROID THERAPY
     Route: 042
  3. PREDNISOLON                        /00016201/ [Concomitant]
     Dosage: 1 mg/kg, Unknown/D
     Route: 048
  4. PREDNISOLON                        /00016201/ [Concomitant]
     Dosage: 10 mg, Unknown/D
     Route: 048

REACTIONS (2)
  - Drug ineffective for unapproved indication [Unknown]
  - Polymyositis [Unknown]
